FAERS Safety Report 7973410-3 (Version None)
Quarter: 2011Q4

REPORT INFORMATION
  Report Type: 
  Country: None (occurrence: None)
  Receive Date: 20111213
  Receipt Date: 20111207
  Transmission Date: 20120403
  Serious: Yes (Hospitalization, Other)
  Sender: FDA-Public Use
  Company Number: CA-GILEAD-2011-0044705

PATIENT
  Sex: Male

DRUGS (17)
  1. ASPIRIN [Concomitant]
  2. MAGNESIUM SULFATE [Concomitant]
  3. DOXEPIN [Concomitant]
  4. PANTOLOC                           /01263202/ [Concomitant]
  5. ALLOPURINOL [Concomitant]
  6. INDAPAMIDE [Concomitant]
  7. MULTIVITAMINS, COMBINATIONS [Concomitant]
  8. AMBRISENTAN [Suspect]
     Indication: PULMONARY ARTERIAL HYPERTENSION
     Dosage: 2.5MG PER DAY
     Route: 048
     Dates: start: 20110909
  9. EZETIMIBE [Concomitant]
  10. PANTOLOC                           /01263202/ [Concomitant]
  11. LOVAZA [Concomitant]
  12. FUROSEMIDE [Concomitant]
  13. OMEGA 3                            /01334101/ [Concomitant]
  14. AMBRISENTAN [Suspect]
     Dosage: 10 UNK, UNK
     Route: 048
  15. ATORVASTATIN [Concomitant]
  16. CALCIUM [Concomitant]
  17. MULTIVITAMINS, COMBINATIONS [Concomitant]

REACTIONS (3)
  - FATIGUE [None]
  - LOSS OF CONSCIOUSNESS [None]
  - LIVER FUNCTION TEST ABNORMAL [None]
